FAERS Safety Report 4274702-4 (Version None)
Quarter: 2004Q1

REPORT INFORMATION
  Report Type: 
  Country: None (occurrence: None)
  Receive Date: 20040115
  Receipt Date: 20031230
  Transmission Date: 20041129
  Serious: Yes (Disabling, Other)
  Sender: FDA-Public Use
  Company Number: DE_031212676

PATIENT
  Age: 73 Year
  Sex: Female
  Weight: 70 kg

DRUGS (2)
  1. EVISTA [Suspect]
     Indication: OSTEOPOROSIS
     Dosage: 60 MG/DAY
     Dates: start: 20030412, end: 20030801
  2. ANALGESIC LIQ [Concomitant]

REACTIONS (2)
  - BLINDNESS UNILATERAL [None]
  - RETINAL VEIN THROMBOSIS [None]
